FAERS Safety Report 22298159 (Version 1)
Quarter: 2023Q2

REPORT INFORMATION
  Report Type: Spontaneous
  Country: US (occurrence: None)
  Receive Date: 20230506
  Receipt Date: 20230506
  Transmission Date: 20230721
  Serious: No
  Sender: FDA-Public Use
  Company Number: None

PATIENT
  Sex: Female
  Weight: 59.87 kg

DRUGS (8)
  1. IBRANCE [Suspect]
     Active Substance: PALBOCICLIB
     Indication: Breast cancer female
     Dosage: FREQUENCY : DAILY; 21 DAYS ON 7 DAYS OFF?
     Route: 048
     Dates: start: 20230412
  2. ANASTROZOLE [Concomitant]
     Active Substance: ANASTROZOLE
  3. ARIMIDEX [Concomitant]
     Active Substance: ANASTROZOLE
  4. AUGMENTIN [Concomitant]
     Active Substance: AMOXICILLIN\CLAVULANATE POTASSIUM
  5. DECADRON [Concomitant]
     Active Substance: DEXAMETHASONE
  6. DEXAMETHASONE [Concomitant]
     Active Substance: DEXAMETHASONE
  7. LEXAPRO [Concomitant]
     Active Substance: ESCITALOPRAM OXALATE
  8. VITAMIN D3 [Concomitant]
     Active Substance: CHOLECALCIFEROL

REACTIONS (1)
  - White blood cell count decreased [None]
